FAERS Safety Report 7668522-8 (Version None)
Quarter: 2011Q3

REPORT INFORMATION
  Report Type: 
  Country: None (occurrence: None)
  Receive Date: 20110808
  Receipt Date: 20110727
  Transmission Date: 20111222
  Serious: Yes (Hospitalization)
  Sender: FDA-Public Use
  Company Number: JP-BRISTOL-MYERS SQUIBB COMPANY-15938152

PATIENT
  Age: 60 Year
  Sex: Female
  Weight: 78 kg

DRUGS (12)
  1. RABEPRAZOLE SODIUM [Concomitant]
  2. ALDACTONE [Concomitant]
  3. RHEUMATREX [Suspect]
     Dates: start: 20101124, end: 20110520
  4. PREDNISOLONE [Concomitant]
  5. URSO 250 [Concomitant]
  6. LAXOBERON [Concomitant]
  7. ACTONEL [Suspect]
     Indication: OSTEOPOROSIS
  8. FOIPAN [Concomitant]
  9. NIZORAL [Concomitant]
  10. BREDININ [Suspect]
     Dates: end: 20110520
  11. ISONIAZID [Suspect]
     Dates: end: 20110519
  12. ORENCIA [Suspect]
     Indication: RHEUMATOID ARTHRITIS
     Route: 041
     Dates: start: 20110309, end: 20110406

REACTIONS (1)
  - LIVER DISORDER [None]
